FAERS Safety Report 22275180 (Version 1)
Quarter: 2023Q2

REPORT INFORMATION
  Report Type: Spontaneous
  Country: GB (occurrence: GB)
  Receive Date: 20230502
  Receipt Date: 20230502
  Transmission Date: 20230721
  Serious: Yes (Other)
  Sender: FDA-Public Use
  Company Number: None

PATIENT
  Age: 46 Year
  Sex: Female
  Weight: 84 kg

DRUGS (6)
  1. NAPROXEN [Suspect]
     Active Substance: NAPROXEN
     Indication: Product used for unknown indication
     Dosage: 250 MILLIGRAM, TID
     Route: 065
     Dates: start: 20230410, end: 20230417
  2. AMLODIPINE [Concomitant]
     Active Substance: AMLODIPINE BESYLATE
     Dosage: 1 DOSAGE FORM, QD
     Route: 065
     Dates: start: 20211224
  3. FAMOTIDINE [Concomitant]
     Active Substance: FAMOTIDINE
     Dosage: 1 DOSAGE FORM, BID
     Route: 065
     Dates: start: 20230123
  4. GABAPENTIN [Concomitant]
     Active Substance: GABAPENTIN
     Dosage: 1 DOSAGE FORM, QD (NIGHT)
     Route: 065
     Dates: start: 20230227
  5. IBUPROFEN [Concomitant]
     Active Substance: IBUPROFEN
     Dosage: 1 DOSAGE FORM, TID (AFTER FOOD)
     Route: 065
     Dates: start: 20230417
  6. INDAPAMIDE [Concomitant]
     Active Substance: INDAPAMIDE
     Dosage: 1 DOSAGE FORM, QD (MORNING)
     Route: 065
     Dates: start: 20211130

REACTIONS (1)
  - Joint swelling [Recovering/Resolving]
